FAERS Safety Report 6158765-7 (Version None)
Quarter: 2009Q2

REPORT INFORMATION
  Report Type: 
  Country: None (occurrence: None)
  Receive Date: 20090417
  Receipt Date: 20090410
  Transmission Date: 20091009
  Serious: Yes (Hospitalization)
  Sender: FDA-Public Use
  Company Number: B0569090A

PATIENT
  Sex: Male

DRUGS (5)
  1. PAXIL [Suspect]
     Dosage: 10MG PER DAY
     Route: 048
     Dates: start: 20090405
  2. THEOPHYLLINE [Concomitant]
  3. BISOLVON [Concomitant]
  4. SELBEX [Concomitant]
     Route: 048
  5. STOGAR [Concomitant]
     Route: 048

REACTIONS (5)
  - ANOREXIA [None]
  - DELUSION [None]
  - HALLUCINATION [None]
  - RESTLESSNESS [None]
  - SOMNAMBULISM [None]
